FAERS Safety Report 9337828 (Version 1)
Quarter: 2013Q2

REPORT INFORMATION
  Report Type: Report from Study
  Country: JP (occurrence: JP)
  Receive Date: 20130607
  Receipt Date: 20130607
  Transmission Date: 20140414
  Serious: Yes (Death)
  Sender: FDA-Public Use
  Company Number: JP-B.I. PHARMACEUTICALS,INC./RIDGEFIELD-2013-BI-15695NB

PATIENT
  Age: 85 Year
  Sex: Male
  Weight: 47 kg

DRUGS (1)
  1. BI-SIFROL [Suspect]
     Indication: RESTLESS LEGS SYNDROME
     Dosage: 0.5 MG
     Route: 048
     Dates: start: 20120618, end: 20121021

REACTIONS (1)
  - Death [Fatal]
